FAERS Safety Report 6482211-7 (Version None)
Quarter: 2009Q4

REPORT INFORMATION
  Report Type: 
  Country: None (occurrence: None)
  Receive Date: 20091208
  Receipt Date: 20090414
  Transmission Date: 20100525
  Serious: No
  Sender: FDA-Public Use
  Company Number: US-AMGEN-KDL342664

PATIENT
  Sex: Female

DRUGS (2)
  1. ENBREL [Suspect]
     Indication: PSORIASIS
     Route: 058
     Dates: start: 20080429
  2. PAXIL [Concomitant]

REACTIONS (5)
  - NASOPHARYNGITIS [None]
  - OROPHARYNGEAL PAIN [None]
  - PSORIASIS [None]
  - RHINORRHOEA [None]
  - TENDERNESS [None]
